FAERS Safety Report 5748147-1 (Version None)
Quarter: 2008Q2

REPORT INFORMATION
  Report Type: 
  Country: None (occurrence: None)
  Receive Date: 20080523
  Receipt Date: 20080512
  Transmission Date: 20081010
  Serious: Yes (Hospitalization)
  Sender: FDA-Public Use
  Company Number: US-BOEHRINGER INGELHEIM GMBH, GERMANY-2005-BP-13969BP

PATIENT
  Sex: Female

DRUGS (60)
  1. MIRAPEX [Suspect]
     Indication: RESTLESS LEGS SYNDROME
     Dates: start: 20030925, end: 20050301
  2. MIRAPEX [Suspect]
     Dates: start: 20030610, end: 20030925
  3. MIRAPEX [Suspect]
     Dates: start: 20020430, end: 20030610
  4. MIRAPEX [Suspect]
     Dates: start: 20050301, end: 20050405
  5. XANAX [Concomitant]
     Indication: ANXIETY
     Route: 048
     Dates: start: 20040901
  6. XANAX [Concomitant]
     Indication: PHOBIA OF FLYING
  7. VITAMIN B-12 [Concomitant]
     Route: 030
     Dates: start: 20020320
  8. DELESTROGEN [Concomitant]
     Indication: HORMONE REPLACEMENT THERAPY
     Route: 030
     Dates: start: 19971101, end: 20020320
  9. DELESTROGEN [Concomitant]
     Indication: HOT FLUSH
     Route: 030
     Dates: start: 20030721
  10. DELESTROGEN [Concomitant]
     Route: 030
     Dates: start: 20030821
  11. DELESTROGEN [Concomitant]
     Route: 030
     Dates: start: 20040101
  12. ESTRATEST [Concomitant]
     Dates: start: 20020412
  13. AMBIEN [Concomitant]
     Indication: RESTLESS LEGS SYNDROME
     Dates: start: 20001002
  14. AMBIEN [Concomitant]
     Indication: INSOMNIA
  15. NEURONTIN [Concomitant]
     Indication: RESTLESS LEGS SYNDROME
     Dates: start: 20010503
  16. SINEMET [Concomitant]
     Indication: RESTLESS LEGS SYNDROME
     Dates: start: 20000911
  17. SINEMET [Concomitant]
     Dates: start: 20010201
  18. SINEMET [Concomitant]
     Dates: start: 20010906
  19. SINEMET [Concomitant]
     Dates: start: 20020401
  20. KLONOPIN [Concomitant]
     Indication: RESTLESS LEGS SYNDROME
     Dates: start: 20050317, end: 20050701
  21. KLONOPIN [Concomitant]
     Indication: INSOMNIA
  22. CYCLOBENZAPRINE HCL [Concomitant]
     Dates: start: 20011030
  23. SKELASIN [Concomitant]
     Dates: start: 20021007
  24. ALPRAZOLAM [Concomitant]
     Dates: start: 20030509
  25. FLONASE [Concomitant]
     Dates: start: 20030509
  26. DETROL LA [Concomitant]
     Dates: start: 20041001
  27. NAPROSYN [Concomitant]
     Indication: BACK PAIN
     Dates: start: 20010601
  28. FLEXERIL [Concomitant]
     Indication: BACK PAIN
     Dates: start: 20010601
  29. ESTRATEST [Concomitant]
  30. CEPHALEXIN [Concomitant]
  31. TRIAMCIN / ORA PST [Concomitant]
  32. DEXAMETHASONE TAB [Concomitant]
  33. AMOXICILLIN [Concomitant]
  34. ACETAMINOPHEN AND HYDROCODONE BITARTRATE [Concomitant]
  35. LEXAPRO [Concomitant]
     Dates: start: 20050401
  36. DEPO-ESTRADIOL [Concomitant]
     Route: 030
     Dates: start: 20040601
  37. ZOLOFT [Concomitant]
     Dates: start: 20050301
  38. EFFEXOR [Concomitant]
  39. REQUIP [Concomitant]
  40. SINEMET CR [Concomitant]
     Indication: RESTLESS LEGS SYNDROME
     Dates: start: 20010901
  41. SINEMET CR [Concomitant]
     Dates: start: 20011101
  42. SINEMET CR [Concomitant]
     Dates: start: 20050801
  43. VOLTAREN [Concomitant]
     Indication: EPICONDYLITIS
     Dates: start: 20060201
  44. LORTAB [Concomitant]
     Indication: SCIATICA
     Dates: start: 20060201
  45. LORTAB [Concomitant]
     Indication: EPICONDYLITIS
  46. LORTAB [Concomitant]
     Indication: PAIN
  47. CYMBALTA [Concomitant]
     Indication: DEPRESSION
     Dates: start: 20051222
  48. CYMBALTA [Concomitant]
     Dates: start: 20051201
  49. HALOBETASOL PROPIONATE OINTMENT [Concomitant]
  50. VYTORIN [Concomitant]
     Dates: start: 20060419
  51. DICLOFENAC SODIUM [Concomitant]
     Dates: start: 20060101
  52. TOBRADEX [Concomitant]
  53. CELEBREX [Concomitant]
     Indication: BACK PAIN
     Route: 048
     Dates: start: 20051006
  54. CELEBREX [Concomitant]
     Indication: PAIN IN EXTREMITY
  55. ADVIL [Concomitant]
     Indication: BACK PAIN
     Dates: start: 20051006
  56. ADVIL [Concomitant]
     Indication: PAIN IN EXTREMITY
  57. POLYETHYLENE GLYCOL [Concomitant]
     Dates: start: 20061201
  58. PRILOSEC [Concomitant]
     Dates: start: 20080308
  59. WELLBUTRIN XL [Concomitant]
  60. CELLCEPT [Concomitant]

REACTIONS (13)
  - ANHEDONIA [None]
  - ANXIETY [None]
  - BEREAVEMENT REACTION [None]
  - DEPENDENCE [None]
  - DEPRESSION [None]
  - ECONOMIC PROBLEM [None]
  - EMOTIONAL DISTRESS [None]
  - FEAR [None]
  - FEELING GUILTY [None]
  - OBSESSIVE-COMPULSIVE DISORDER [None]
  - PAIN [None]
  - PATHOLOGICAL GAMBLING [None]
  - ROAD TRAFFIC ACCIDENT [None]
